FAERS Safety Report 22021987 (Version 2)
Quarter: 2023Q4

REPORT INFORMATION
  Report Type: Report from Study
  Country: CA (occurrence: CA)
  Receive Date: 20230222
  Receipt Date: 20231206
  Transmission Date: 20240109
  Serious: Yes (Hospitalization, Other)
  Sender: FDA-Public Use
  Company Number: CA-OTSUKA-2021_034346

PATIENT
  Age: 83 Year
  Sex: Female

DRUGS (2)
  1. CEDAZURIDINE\DECITABINE [Suspect]
     Active Substance: CEDAZURIDINE\DECITABINE
     Indication: Acute myeloid leukaemia
     Dosage: UNK
     Route: 065
     Dates: start: 20210928
  2. CEDAZURIDINE\DECITABINE [Suspect]
     Active Substance: CEDAZURIDINE\DECITABINE
     Dosage: QD 1-3 TABLETS EVERY CYCLE
     Route: 065

REACTIONS (11)
  - Diabetes mellitus [Unknown]
  - Hallucination [Unknown]
  - Tendonitis [Unknown]
  - Brain fog [Unknown]
  - Rash macular [Unknown]
  - Swelling face [Not Recovered/Not Resolved]
  - Peripheral swelling [Unknown]
  - Fatigue [Unknown]
  - Product use in unapproved indication [Unknown]
  - Inappropriate schedule of product administration [Unknown]
  - Therapy cessation [Unknown]

NARRATIVE: CASE EVENT DATE: 20210928
